FAERS Safety Report 25771535 (Version 6)
Quarter: 2025Q4

REPORT INFORMATION
  Report Type: Report from Study
  Country: EU (occurrence: EU)
  Receive Date: 20250908
  Receipt Date: 20251208
  Transmission Date: 20260118
  Serious: Yes (Hospitalization, Other)
  Sender: KYOWA
  Company Number: EU-KYOWAKIRIN-2025KK016984

PATIENT

DRUGS (10)
  1. MOGAMULIZUMAB [Suspect]
     Active Substance: MOGAMULIZUMAB
     Indication: Cutaneous T-cell lymphoma
     Dosage: 76 MG (60 MINUTES INFUSION, COMPLETE DOSE ADMINISTERED).
     Route: 042
     Dates: start: 20250813, end: 20250903
  2. MOGAMULIZUMAB [Suspect]
     Active Substance: MOGAMULIZUMAB
     Dosage: UNK
     Route: 042
     Dates: start: 20250514, end: 20250903
  3. MOGAMULIZUMAB [Suspect]
     Active Substance: MOGAMULIZUMAB
     Dosage: 78 MG (60 MINUTES INFUSION, COMPLETE DOSE ADMINISTERED).
     Route: 042
     Dates: start: 20250514, end: 20250514
  4. MOGAMULIZUMAB [Suspect]
     Active Substance: MOGAMULIZUMAB
     Dosage: 78 MG (60 MINUTES INFUSION, COMPLETE DOSE ADMINISTERED).
     Route: 042
     Dates: start: 20250521, end: 20250521
  5. MOGAMULIZUMAB [Suspect]
     Active Substance: MOGAMULIZUMAB
     Dosage: 80 MG (60 MINUTES INFUSION, COMPLETE DOSE ADMINISTERED).
     Route: 042
     Dates: start: 20250604, end: 20250604
  6. MOGAMULIZUMAB [Suspect]
     Active Substance: MOGAMULIZUMAB
     Dosage: 78 MG (60 MINUTES INFUSION, COMPLETE DOSE ADMINISTERED).
     Route: 042
     Dates: start: 20250611, end: 20250611
  7. MOGAMULIZUMAB [Suspect]
     Active Substance: MOGAMULIZUMAB
     Dosage: 78 MG (60 MINUTES INFUSION, COMPLETE DOSE ADMINISTERED).
     Route: 042
     Dates: start: 20250625, end: 20250625
  8. MOGAMULIZUMAB [Suspect]
     Active Substance: MOGAMULIZUMAB
     Dosage: 78 MG (60 MINUTES INFUSION, COMPLETE DOSE ADMINISTERED).
     Route: 042
     Dates: start: 20250716, end: 20250716
  9. MOGAMULIZUMAB [Suspect]
     Active Substance: MOGAMULIZUMAB
     Dosage: 76 MG (60 MINUTES INFUSION, COMPLETE DOSE ADMINISTERED).
     Route: 042
     Dates: start: 20250730, end: 20250730
  10. MOGAMULIZUMAB [Suspect]
     Active Substance: MOGAMULIZUMAB
     Dosage: 76 MG (60 MINUTES INFUSION, COMPLETE DOSE ADMINISTERED).
     Route: 042
     Dates: start: 20250813, end: 20250813

REACTIONS (13)
  - Cholestasis [Recovered/Resolved with Sequelae]
  - Cholestasis [Recovered/Resolved with Sequelae]
  - Hepatic cytolysis [Recovered/Resolved with Sequelae]
  - Hepatic cytolysis [Recovered/Resolved with Sequelae]
  - Cholestasis [Recovered/Resolved]
  - Cholestasis [Recovered/Resolved with Sequelae]
  - Cholestasis [Recovered/Resolved with Sequelae]
  - Hepatic cytolysis [Recovered/Resolved]
  - Hepatic cytolysis [Not Recovered/Not Resolved]
  - Hepatic cytolysis [Recovered/Resolved with Sequelae]
  - Hepatic cytolysis [Recovered/Resolved]
  - Decreased appetite [Recovered/Resolved with Sequelae]
  - Weight decreased [Not Recovered/Not Resolved]

NARRATIVE: CASE EVENT DATE: 20250712
